FAERS Safety Report 11293129 (Version 1)
Quarter: 2015Q3

REPORT INFORMATION
  Report Type: Spontaneous
  Country: US (occurrence: US)
  Receive Date: 20150722
  Receipt Date: 20150722
  Transmission Date: 20151125
  Serious: No
  Sender: FDA-Public Use
  Company Number: US-BAYER-2015-376466

PATIENT
  Sex: Female

DRUGS (1)
  1. CLIMARA [Suspect]
     Active Substance: ESTRADIOL
     Dosage: UNK
     Route: 062
     Dates: start: 2014

REACTIONS (4)
  - Product adhesion issue [Not Recovered/Not Resolved]
  - Drug administered at inappropriate site [None]
  - Inappropriate schedule of drug administration [None]
  - Product physical issue [None]

NARRATIVE: CASE EVENT DATE: 201411
